FAERS Safety Report 21017250 (Version 1)
Quarter: 2022Q2

REPORT INFORMATION
  Report Type: Spontaneous
  Country: US (occurrence: None)
  Receive Date: 20220627
  Receipt Date: 20220627
  Transmission Date: 20220721
  Serious: Yes (Life-Threatening, Hospitalization)
  Sender: FDA-Public Use
  Company Number: None

PATIENT
  Age: 59 Year
  Sex: Female
  Weight: 107.6 kg

DRUGS (22)
  1. AIMOVIG [Suspect]
     Active Substance: ERENUMAB-AOOE
     Indication: Migraine prophylaxis
     Dosage: OTHER FREQUENCY : ONCE MONTHLY;?
     Route: 058
     Dates: end: 20220613
  2. Trazodone 50 mg tablets [Concomitant]
  3. Amitriptyline 50 mg tablets [Concomitant]
  4. Eszopiclone 3 mg tablets [Concomitant]
  5. Lemborexant 5 mg tablets [Concomitant]
  6. Clonazepam 0.5 mg tablets [Concomitant]
  7. LOSARTAN [Concomitant]
     Active Substance: LOSARTAN
  8. PREDNISONE [Concomitant]
     Active Substance: PREDNISONE
  9. Donepezil 10 mg tablets [Concomitant]
  10. AMLODIPINE [Concomitant]
     Active Substance: AMLODIPINE BESYLATE
  11. Divalproex ER 250 mg tablets [Concomitant]
  12. PANTOPRAZOLE SODIUM [Concomitant]
     Active Substance: PANTOPRAZOLE SODIUM
  13. Ubrogepant 50 mg tablets [Concomitant]
  14. IRBESARTAN [Concomitant]
     Active Substance: IRBESARTAN
  15. LOPERAMIDE [Concomitant]
     Active Substance: LOPERAMIDE
  16. Paliperidone ER 9 mg tablets [Concomitant]
  17. Paroxetine 40 mg tablets [Concomitant]
  18. Tramadol 50 mg tablet [Concomitant]
  19. Hydrocodone/APAP 5/325 mg tablets [Concomitant]
  20. LAMOTRIGINE [Concomitant]
     Active Substance: LAMOTRIGINE
  21. Baclofen 20 mg tablets [Concomitant]
  22. Sumatriptan 50 mg tablets [Concomitant]

REACTIONS (7)
  - Dyspnoea [None]
  - Swelling face [None]
  - Dysphagia [None]
  - Nausea [None]
  - Dysphagia [None]
  - Drug hypersensitivity [None]
  - Swollen tongue [None]

NARRATIVE: CASE EVENT DATE: 20220613
